FAERS Safety Report 8872819 (Version 2)
Quarter: 2013Q1

REPORT INFORMATION
  Report Type: Spontaneous
  Country: FR (occurrence: FR)
  Receive Date: 20121030
  Receipt Date: 20130307
  Transmission Date: 20140127
  Serious: Yes (Other)
  Sender: FDA-Public Use
  Company Number: FR-ROCHE-1150208

PATIENT
  Age: 70 Year
  Sex: Female
  Weight: 56 kg

DRUGS (8)
  1. ROACTEMRA [Suspect]
     Indication: PRODUCT USED FOR UNKNOWN INDICATION
     Route: 042
     Dates: start: 20101230, end: 20120920
  2. CORTANCYL [Concomitant]
     Route: 065
  3. NOVATREX [Concomitant]
     Route: 065
  4. KARDEGIC [Concomitant]
     Route: 065
  5. INEXIUM [Concomitant]
     Route: 065
  6. PRAVASTATINE [Concomitant]
     Route: 065
  7. DOLIPRANE [Concomitant]
     Route: 065
  8. COKENZEN [Concomitant]
     Route: 065

REACTIONS (2)
  - Hallucination, auditory [Recovered/Resolved]
  - Delirium [Recovered/Resolved]
